FAERS Safety Report 10075271 (Version 1)
Quarter: 2014Q2

REPORT INFORMATION
  Report Type: Spontaneous
  Country: US (occurrence: US)
  Receive Date: 20140414
  Receipt Date: 20140414
  Transmission Date: 20141212
  Serious: No
  Sender: FDA-Public Use
  Company Number: US-BIOGENIDEC-2014BI030426

PATIENT
  Sex: Male

DRUGS (7)
  1. TECFIDERA [Suspect]
     Indication: MULTIPLE SCLEROSIS
     Route: 048
     Dates: start: 20140215
  2. CENTRUM SILVER [Concomitant]
  3. CO-Q10 [Concomitant]
  4. COLACE [Concomitant]
  5. MELATONIN [Concomitant]
  6. VITAMIN D [Concomitant]
  7. VITAMIN D3 [Concomitant]

REACTIONS (1)
  - Breast swelling [Unknown]
